FAERS Safety Report 10701102 (Version 1)
Quarter: 2014Q4

REPORT INFORMATION
  Report Type: Spontaneous
  Country: US (occurrence: None)
  Receive Date: 20141229
  Receipt Date: 20141229
  Transmission Date: 20150529
  Serious: Yes (Hospitalization, Other)
  Sender: FDA-Public Use
  Company Number: 2014AP005433

PATIENT
  Age: 48 Year
  Sex: Male

DRUGS (5)
  1. CLONAZEPAM (CLONAZEPAM) [Concomitant]
     Active Substance: CLONAZEPAM
  2. BENZTROPINE (BENZATROPINE MESILATE) [Concomitant]
     Active Substance: BENZTROPINE MESYLATE
  3. OLANZAPINE. [Suspect]
     Active Substance: OLANZAPINE
     Indication: SCHIZOAFFECTIVE DISORDER
  4. VALPROATE SEMISODIUM (VALPROATE SEMISODIUM) [Concomitant]
     Active Substance: DIVALPROEX SODIUM
  5. RISPERIDONE (RISPERIDONE) TABLET [Suspect]
     Active Substance: RISPERIDONE
     Indication: SCHIZOAFFECTIVE DISORDER

REACTIONS (2)
  - Neuroleptic malignant syndrome [None]
  - Acute kidney injury [None]
